FAERS Safety Report 25902974 (Version 1)
Quarter: 2025Q4

REPORT INFORMATION
  Report Type: Spontaneous
  Country: ET (occurrence: ET)
  Receive Date: 20251009
  Receipt Date: 20251009
  Transmission Date: 20260118
  Serious: Yes (Life-Threatening, Hospitalization, Other)
  Sender: B. BRAUN MEDICAL INC.
  Company Number: ET-B. Braun Medical Inc.-ET-BBM-202503879

PATIENT
  Age: 27 Year
  Sex: Female

DRUGS (1)
  1. LIDOCAINE [Suspect]
     Active Substance: LIDOCAINE
     Indication: Anaesthesia

REACTIONS (2)
  - Subdural haematoma [Recovered/Resolved]
  - Maternal exposure during pregnancy [Unknown]
